FAERS Safety Report 14107061 (Version 1)
Quarter: 2017Q4

REPORT INFORMATION
  Report Type: Spontaneous
  Country: US (occurrence: None)
  Receive Date: 20171018
  Receipt Date: 20171018
  Transmission Date: 20180321
  Serious: Yes (Hospitalization)
  Sender: FDA-Public Use
  Company Number: None

PATIENT
  Age: 82 Year
  Sex: Female

DRUGS (1)
  1. ACTEMRA [Suspect]
     Active Substance: TOCILIZUMAB
     Route: 058
     Dates: start: 20170807, end: 201709

REACTIONS (5)
  - Stomatitis [None]
  - Skin exfoliation [None]
  - Blister [None]
  - Oral discomfort [None]
  - Nail avulsion [None]

NARRATIVE: CASE EVENT DATE: 20170928
